FAERS Safety Report 18672032 (Version 1)
Quarter: 2020Q4

REPORT INFORMATION
  Report Type: Spontaneous
  Country: BR (occurrence: AT)
  Receive Date: 20201228
  Receipt Date: 20201228
  Transmission Date: 20210114
  Serious: Yes (Hospitalization)
  Sender: FDA-Public Use
  Company Number: AT-ELI_LILLY_AND_COMPANY-AT202012010581

PATIENT
  Age: 18 Year
  Sex: Female
  Weight: 60 kg

DRUGS (1)
  1. ATOMOXETINE HYDROCHLORIDE. [Suspect]
     Active Substance: ATOMOXETINE HYDROCHLORIDE
     Indication: ATTENTION DEFICIT HYPERACTIVITY DISORDER
     Dosage: 60 MG, DAILY
     Route: 065
     Dates: start: 2018

REACTIONS (18)
  - Aphasia [Unknown]
  - Syncope [Unknown]
  - Ocular hyperaemia [Unknown]
  - Cerebral hypoperfusion [Unknown]
  - Vision blurred [Unknown]
  - Eye pain [Unknown]
  - Hemianopia [Recovered/Resolved]
  - Disorientation [Unknown]
  - Speech disorder [Unknown]
  - Depersonalisation/derealisation disorder [Unknown]
  - Blood creatine phosphokinase increased [Unknown]
  - Headache [Unknown]
  - Seizure [Unknown]
  - Electrocardiogram QT prolonged [Unknown]
  - Sensory disturbance [Recovered/Resolved]
  - Weight decreased [Unknown]
  - Hyperreflexia [Unknown]
  - Hypokalaemia [Unknown]
